FAERS Safety Report 21245662 (Version 1)
Quarter: 2022Q3

REPORT INFORMATION
  Report Type: Spontaneous
  Country: FR (occurrence: FR)
  Receive Date: 20220824
  Receipt Date: 20220824
  Transmission Date: 20221027
  Serious: Yes (Hospitalization, Other)
  Sender: FDA-Public Use
  Company Number: FR-VALIDUS PHARMACEUTICALS LLC-FR-VDP-2022-015669

PATIENT

DRUGS (3)
  1. CEFOTAXIME SODIUM [Suspect]
     Active Substance: CEFOTAXIME SODIUM
     Indication: Escherichia infection
     Dosage: UNK
     Route: 065
     Dates: start: 20220525, end: 20220531
  2. VANCOMYCIN [Suspect]
     Active Substance: VANCOMYCIN
     Indication: Escherichia infection
     Dosage: UNK
     Route: 065
     Dates: start: 20220522, end: 20220525
  3. CLOXACILLIN [Suspect]
     Active Substance: CLOXACILLIN
     Indication: Escherichia infection
     Dosage: UNK
     Route: 065
     Dates: start: 20220525, end: 20220531

REACTIONS (2)
  - Cutaneous vasculitis [Recovered/Resolved]
  - Glomerulonephritis [Unknown]

NARRATIVE: CASE EVENT DATE: 20220531
